FAERS Safety Report 11010789 (Version 1)
Quarter: 2015Q2

REPORT INFORMATION
  Report Type: Spontaneous
  Country: US (occurrence: US)
  Receive Date: 20150410
  Receipt Date: 20150410
  Transmission Date: 20150821
  Serious: No
  Sender: FDA-Public Use
  Company Number: US-B.I. PHARMACEUTICALS,INC./RIDGEFIELD-2015-BI-17633BP

PATIENT

DRUGS (1)
  1. SPIRIVA [Suspect]
     Active Substance: TIOTROPIUM BROMIDE MONOHYDRATE
     Indication: PRODUCT USED FOR UNKNOWN INDICATION
     Dosage: 2 PUF
     Route: 065

REACTIONS (7)
  - Pollakiuria [Unknown]
  - Dry mouth [Unknown]
  - Pharyngitis [Unknown]
  - Constipation [Unknown]
  - Insomnia [Unknown]
  - Dehydration [Unknown]
  - Chest discomfort [Unknown]
